FAERS Safety Report 5485136-9 (Version None)
Quarter: 2007Q4

REPORT INFORMATION
  Report Type: 
  Country: None (occurrence: None)
  Receive Date: 20071011
  Receipt Date: 20070927
  Transmission Date: 20080405
  Serious: Yes (Hospitalization)
  Sender: FDA-Public Use
  Company Number: 2007BI018854

PATIENT
  Age: 55 Year
  Sex: Female

DRUGS (1)
  1. AVONEX [Suspect]
     Indication: MULTIPLE SCLEROSIS
     Dosage: 30 UG; QW; IM
     Route: 030
     Dates: start: 19991101

REACTIONS (12)
  - BALANCE DISORDER [None]
  - CYSTITIS [None]
  - DIZZINESS [None]
  - DRUG HYPERSENSITIVITY [None]
  - EATING DISORDER [None]
  - ESCHERICHIA URINARY TRACT INFECTION [None]
  - FALL [None]
  - INCONTINENCE [None]
  - MALAISE [None]
  - MUSCLE SPASMS [None]
  - RENAL FAILURE [None]
  - SLEEP DISORDER [None]
